FAERS Safety Report 12488749 (Version 2)
Quarter: 2016Q3

REPORT INFORMATION
  Report Type: Spontaneous
  Country: US (occurrence: US)
  Receive Date: 20160622
  Receipt Date: 20160824
  Transmission Date: 20161109
  Serious: Yes (Other)
  Sender: FDA-Public Use
  Company Number: US-PFIZER INC-2016309499

PATIENT
  Age: 22 Year
  Sex: Female
  Weight: 70 kg

DRUGS (2)
  1. GABAPENTIN. [Suspect]
     Active Substance: GABAPENTIN
     Indication: MUSCLE TWITCHING
     Dosage: 600 MG, 3X/DAY
  2. GABAPENTIN. [Suspect]
     Active Substance: GABAPENTIN
     Indication: MIGRAINE
     Dosage: 600 MG, 3X/DAY
     Dates: start: 20160101, end: 201605

REACTIONS (4)
  - Generalised tonic-clonic seizure [Recovered/Resolved]
  - Dyskinesia [Not Recovered/Not Resolved]
  - Drug detoxification [Recovered/Resolved]
  - Product use issue [Unknown]

NARRATIVE: CASE EVENT DATE: 2016
